FAERS Safety Report 7396481-4 (Version None)
Quarter: 2011Q2

REPORT INFORMATION
  Report Type: 
  Country: None (occurrence: None)
  Receive Date: 20110406
  Receipt Date: 20101015
  Transmission Date: 20111010
  Serious: Yes (Hospitalization, Other)
  Sender: FDA-Public Use
  Company Number: US-BAYER-200943723NA

PATIENT
  Sex: Female
  Weight: 79.365 kg

DRUGS (18)
  1. VERAPAMIL [Concomitant]
  2. ADVAIR DISKUS 100/50 [Concomitant]
  3. FLONASE [Concomitant]
  4. LOTENSIN [Concomitant]
     Indication: HYPERTENSION
  5. UNCODEABLE ^UNCLASSIFIABLE^ [Concomitant]
  6. FIORICET [Concomitant]
  7. POTASSIUM 99 [Concomitant]
  8. ALLERGY SHOTS [Concomitant]
  9. SINGULAIR [Concomitant]
  10. WELLBUTRIN [Concomitant]
  11. HYDROCHLOROTHIAZIDE [Concomitant]
  12. VITAMIN B12 [Concomitant]
  13. YASMIN [Suspect]
     Indication: UTERINE LEIOMYOMA
     Dosage: UNK
     Dates: start: 20030101, end: 20060101
  14. NEXIUM [Concomitant]
  15. CLARINEX [Concomitant]
  16. ALBUTEROL [Concomitant]
  17. ETODOLAC [Concomitant]
  18. KLOR-CON [Concomitant]
     Indication: BLOOD POTASSIUM DECREASED

REACTIONS (2)
  - CEREBROVASCULAR ACCIDENT [None]
  - PAIN [None]
